FAERS Safety Report 18140501 (Version 1)
Quarter: 2020Q3

REPORT INFORMATION
  Report Type: Spontaneous
  Country: CA (occurrence: CA)
  Receive Date: 20200812
  Receipt Date: 20200812
  Transmission Date: 20201103
  Serious: Yes (Other)
  Sender: FDA-Public Use
  Company Number: CA-PFIZER INC-2020306172

PATIENT
  Age: 88 Year
  Sex: Female

DRUGS (2)
  1. ZOLEDRONIC ACID [Suspect]
     Active Substance: ZOLEDRONIC ACID
     Dosage: 1 EVERY 3 MONTHS
     Route: 051
  2. ZOLEDRONIC ACID [Suspect]
     Active Substance: ZOLEDRONIC ACID
     Dosage: EVERY 3 MONTHS
     Route: 051

REACTIONS (4)
  - Product dose omission issue [Unknown]
  - Thrombosis [Unknown]
  - Tooth disorder [Unknown]
  - Nasopharyngitis [Unknown]
